FAERS Safety Report 7623609-0 (Version None)
Quarter: 2011Q3

REPORT INFORMATION
  Report Type: 
  Country: None (occurrence: None)
  Receive Date: 20110712
  Receipt Date: 20110629
  Transmission Date: 20111222
  Serious: Yes (Hospitalization, Other)
  Sender: FDA-Public Use
  Company Number: 2010AC000075

PATIENT
  Age: 55 Year
  Sex: Female

DRUGS (24)
  1. QUINAPRIL HCL [Concomitant]
  2. ALDACTONE [Concomitant]
  3. ZAROXOLYN [Concomitant]
  4. FOLTX [Concomitant]
  5. FUROSEMIDE [Concomitant]
  6. INSULIN [Concomitant]
  7. BIDIL [Concomitant]
  8. FLUCONATE [Concomitant]
  9. ASPIRIN [Concomitant]
  10. LOTENSIN [Concomitant]
  11. NEXIUM [Concomitant]
  12. BICARBONATE [Concomitant]
  13. SYNTHROID [Concomitant]
  14. WARFARIN [Concomitant]
  15. TRIAMICNOLONE [Concomitant]
  16. PROTONIX [Concomitant]
  17. COREG [Concomitant]
  18. CALCIUM CARBONATE [Concomitant]
  19. KAYEXALATE [Concomitant]
  20. ATORVASTATIN [Concomitant]
  21. DIGOXIN [Suspect]
     Indication: CARDIAC FAILURE CONGESTIVE
     Dosage: 0.25 MG;QD;PO
     Route: 048
     Dates: start: 20070607, end: 20080101
  22. DIGOXIN [Suspect]
     Dosage: 0.125 MG;QD;PO
     Route: 048
     Dates: start: 20080117, end: 20080301
  23. KLOR-CON [Concomitant]
  24. BUMEX [Concomitant]

REACTIONS (13)
  - ASTHENIA [None]
  - VOMITING [None]
  - NAUSEA [None]
  - ANAEMIA [None]
  - HYPERKALAEMIA [None]
  - ACTIVITIES OF DAILY LIVING IMPAIRED [None]
  - FATIGUE [None]
  - URINARY TRACT INFECTION [None]
  - RENAL FAILURE [None]
  - URINE OUTPUT DECREASED [None]
  - HYPOTENSION [None]
  - TOXICITY TO VARIOUS AGENTS [None]
  - CARDIOMYOPATHY [None]
